FAERS Safety Report 4790189-7 (Version None)
Quarter: 2005Q4

REPORT INFORMATION
  Report Type: 
  Country: None (occurrence: None)
  Receive Date: 20051005
  Receipt Date: 20051005
  Transmission Date: 20060501
  Serious: Yes (Hospitalization)
  Sender: FDA-Public Use
  Company Number: None

PATIENT
  Age: 71 Year
  Sex: Male
  Weight: 75 kg

DRUGS (10)
  1. HEPARIN [Suspect]
     Indication: ATRIAL FIBRILLATION
     Dosage: 800 UNITS /HR IV
     Route: 042
     Dates: start: 20040823, end: 20040831
  2. APAP TAB [Concomitant]
  3. OXYCODONE AND ACETAMINOPHEN [Concomitant]
  4. AMIODARONE [Concomitant]
  5. HALOPERIDOL [Concomitant]
  6. AMLODIPINE [Concomitant]
  7. LNSOPRAZOLE [Concomitant]
  8. LABETALOL [Concomitant]
  9. ENALAPRIL [Concomitant]
  10. DOCUSATE [Concomitant]

REACTIONS (1)
  - HEPARIN-INDUCED THROMBOCYTOPENIA [None]
